FAERS Safety Report 21509233 (Version 1)
Quarter: 2022Q4

REPORT INFORMATION
  Report Type: Spontaneous
  Country: GB (occurrence: GB)
  Receive Date: 20221026
  Receipt Date: 20221026
  Transmission Date: 20230113
  Serious: Yes (Hospitalization)
  Sender: FDA-Public Use
  Company Number: GB-VERTEX PHARMACEUTICALS-2022-015838

PATIENT
  Sex: Male

DRUGS (12)
  1. ELEXACAFTOR\IVACAFTOR\TEZACAFTOR [Suspect]
     Active Substance: ELEXACAFTOR\IVACAFTOR\TEZACAFTOR
     Indication: Cystic fibrosis
     Dosage: 2 TABLETS (75MG IVACAFTOR/ 50MG TEZACAFTOR/ 100MG ELEXACAFTOR) AM
     Route: 048
     Dates: start: 2020
  2. KALYDECO [Suspect]
     Active Substance: IVACAFTOR
     Indication: Cystic fibrosis
     Dosage: UNK FREQ
     Route: 048
     Dates: start: 2020
  3. OMEPRAZOLE [Concomitant]
     Active Substance: OMEPRAZOLE
  4. HYDROCORTISONE [Concomitant]
     Active Substance: HYDROCORTISONE
  5. URSO [Concomitant]
     Active Substance: URSODIOL
  6. OXYCODONE [Concomitant]
     Active Substance: OXYCODONE
  7. GABAPENTIN [Concomitant]
     Active Substance: GABAPENTIN
  8. ALBUTEROL [Concomitant]
     Active Substance: ALBUTEROL
  9. MINOCYCLINE HYDROCHLORIDE [Concomitant]
     Active Substance: MINOCYCLINE HYDROCHLORIDE
  10. AZITHROMYCIN [Concomitant]
     Active Substance: AZITHROMYCIN
  11. AMITRIPTYLINE [Concomitant]
     Active Substance: AMITRIPTYLINE
  12. PULMOZYME [Concomitant]
     Active Substance: DORNASE ALFA

REACTIONS (1)
  - Cystic fibrosis [Unknown]

NARRATIVE: CASE EVENT DATE: 20220101
